FAERS Safety Report 17902247 (Version 1)
Quarter: 2020Q2

REPORT INFORMATION
  Report Type: Spontaneous
  Country: ES (occurrence: ES)
  Receive Date: 20200616
  Receipt Date: 20200616
  Transmission Date: 20200714
  Serious: Yes (Other)
  Sender: FDA-Public Use
  Company Number: NVSC2020ES164388

PATIENT
  Age: 23 Year
  Sex: Male
  Weight: 75 kg

DRUGS (16)
  1. TACROLIMUS. [Suspect]
     Active Substance: TACROLIMUS
     Dosage: 5 MG
     Route: 048
  2. TACROLIMUS. [Suspect]
     Active Substance: TACROLIMUS
     Dosage: UNK (INCREASED DOSE)
     Route: 048
  3. TACROLIMUS. [Suspect]
     Active Substance: TACROLIMUS
     Dosage: 8 MG
     Route: 048
  4. TACROLIMUS. [Suspect]
     Active Substance: TACROLIMUS
     Dosage: UNK (INCREASED DOSE)
     Route: 048
  5. TACROLIMUS. [Suspect]
     Active Substance: TACROLIMUS
     Indication: IMMUNOSUPPRESSION
     Dosage: 4 MG
     Route: 048
     Dates: start: 20170304
  6. TACROLIMUS. [Suspect]
     Active Substance: TACROLIMUS
     Dosage: 8 MG
     Route: 048
  7. TACROLIMUS. [Suspect]
     Active Substance: TACROLIMUS
     Dosage: 5 MG
     Route: 048
  8. TACROLIMUS. [Suspect]
     Active Substance: TACROLIMUS
     Dosage: 5 MG
     Route: 048
  9. TACROLIMUS. [Suspect]
     Active Substance: TACROLIMUS
     Dosage: 8 MG
     Route: 048
  10. TACROLIMUS. [Suspect]
     Active Substance: TACROLIMUS
     Dosage: 8 MG
     Route: 048
  11. TACROLIMUS. [Suspect]
     Active Substance: TACROLIMUS
     Dosage: 4 MG
     Route: 048
     Dates: start: 20170304
  12. TACROLIMUS. [Suspect]
     Active Substance: TACROLIMUS
     Dosage: UNK (INCREASED DOSE)
     Route: 048
  13. TACROLIMUS. [Suspect]
     Active Substance: TACROLIMUS
     Dosage: 4 MG
     Route: 048
     Dates: start: 20170304
  14. TACROLIMUS. [Suspect]
     Active Substance: TACROLIMUS
     Dosage: 5 MG
     Route: 048
  15. TACROLIMUS. [Suspect]
     Active Substance: TACROLIMUS
     Dosage: UNK (INCREASED DOSE)
     Route: 048
  16. TACROLIMUS. [Suspect]
     Active Substance: TACROLIMUS
     Dosage: 4 MG
     Route: 048
     Dates: start: 20170304

REACTIONS (7)
  - Ascites [Recovered/Resolved]
  - Cholestasis [Recovered/Resolved]
  - Neurotoxicity [Recovered/Resolved]
  - Diarrhoea [Recovered/Resolved]
  - Renal impairment [Recovered/Resolved with Sequelae]
  - Cell death [Recovered/Resolved]
  - Cell death [Recovered/Resolved]

NARRATIVE: CASE EVENT DATE: 20170306
